FAERS Safety Report 16467626 (Version 3)
Quarter: 2019Q3

REPORT INFORMATION
  Report Type: Report from Study
  Country: SE (occurrence: SE)
  Receive Date: 20190624
  Receipt Date: 20190701
  Transmission Date: 20191004
  Serious: Yes (Death, Hospitalization)
  Sender: FDA-Public Use
  Company Number: DK-ASTRAZENECA-2019SE90958

PATIENT
  Age: 81 Year
  Sex: Female

DRUGS (6)
  1. BETAMETHASONE SODIUM PHOSPHATE [Concomitant]
     Active Substance: BETAMETHASONE SODIUM PHOSPHATE
     Indication: FATIGUE
     Dosage: 2 MG
  2. NALOXEGOL [Suspect]
     Active Substance: NALOXEGOL
     Indication: CONSTIPATION
     Dosage: 12.5MG UNKNOWN
     Route: 048
     Dates: start: 20190328, end: 20190430
  3. SALURES [Concomitant]
     Active Substance: BENDROFLUMETHIAZIDE
     Indication: DIURETIC THERAPY
     Dosage: 2.5 MG
     Dates: start: 20180104, end: 20190417
  4. CELEBRA [Concomitant]
     Active Substance: CELECOXIB
     Dosage: 400 MG
     Dates: start: 20190401
  5. MATRIFEN [Concomitant]
     Active Substance: FENTANYL
     Indication: PAIN
     Dosage: 50 MCG/H
     Dates: start: 20180104
  6. OMEPRAZOL [Concomitant]
     Active Substance: OMEPRAZOLE
     Indication: PROPHYLAXIS AGAINST GASTROINTESTINAL ULCER
     Dosage: 20 MG
     Dates: start: 20180104

REACTIONS (3)
  - Diarrhoea [Recovered/Resolved]
  - Dehydration [Unknown]
  - Disease progression [Fatal]

NARRATIVE: CASE EVENT DATE: 20190426
